FAERS Safety Report 9149345 (Version 1)
Quarter: 2013Q1

REPORT INFORMATION
  Report Type: Spontaneous
  Country: FR (occurrence: FR)
  Receive Date: 20130308
  Receipt Date: 20130308
  Transmission Date: 20140127
  Serious: Yes (Hospitalization)
  Sender: FDA-Public Use
  Company Number: FR-EISAI INC-E3810-06283-SPO-FR

PATIENT
  Age: 81 Year
  Sex: Female

DRUGS (6)
  1. PARIET (RABEPRAZOLE) [Suspect]
     Dosage: UNKNOWN
     Route: 048
     Dates: start: 201202, end: 20120918
  2. DOMPERIDONE [Concomitant]
     Dosage: UNKNOWN
     Route: 065
  3. SEROPLEX [Concomitant]
     Dosage: UNKNOWN
     Route: 065
  4. ALVERINE [Concomitant]
     Dosage: UNKNOWN
     Route: 065
  5. LEXOMIL [Concomitant]
     Dosage: UNKNOWN
     Route: 065
  6. LUBENTYL [Concomitant]
     Dosage: UNKNOWN
     Route: 065

REACTIONS (2)
  - Renal tubular disorder [Recovered/Resolved with Sequelae]
  - Tubulointerstitial nephritis [Recovered/Resolved with Sequelae]
